FAERS Safety Report 23605881 (Version 1)
Quarter: 2024Q1

REPORT INFORMATION
  Report Type: Spontaneous
  Country: CA (occurrence: CA)
  Receive Date: 20240307
  Receipt Date: 20240307
  Transmission Date: 20240410
  Serious: Yes (Other)
  Sender: FDA-Public Use
  Company Number: None

PATIENT
  Age: 47 Year
  Sex: Female

DRUGS (11)
  1. TACROLIMUS [Suspect]
     Active Substance: TACROLIMUS
     Indication: Product used for unknown indication
     Dosage: DOSE, FREQUENCY, THERAPY DURATION: ASKED BUT UNKNOWN
  2. SINGULAIR [Concomitant]
     Active Substance: MONTELUKAST SODIUM
     Indication: Product used for unknown indication
     Dosage: THERAPY DURATION: ASKED BUT UNKNOWN
  3. HYDROXYZINE [Suspect]
     Active Substance: HYDROXYZINE HYDROCHLORIDE
     Indication: Product used for unknown indication
     Dosage: DOSE, FREQUENCY, THERAPY DURATION: ASKED BUT UNKNOWN
  4. CLINDAMYCIN [Concomitant]
     Active Substance: CLINDAMYCIN
     Indication: Prophylaxis
     Dosage: DOSE, FREQUENCY: ASKED BUT UNKNOWN
  5. ZANTAC [Concomitant]
     Active Substance: RANITIDINE HYDROCHLORIDE
     Indication: Product used for unknown indication
     Dosage: THERAPY DURATION: ASKED BUT UNKNOWN
  6. KETOTIFEN [Concomitant]
     Active Substance: KETOTIFEN
     Indication: Product used for unknown indication
     Dosage: DOSE, FREQUENCY, THERAPY DURATION: ASKED BUT UNKNOWN
  7. OMALIZUMAB [Suspect]
     Active Substance: OMALIZUMAB
     Indication: Chronic spontaneous urticaria
     Dosage: THERAPY DURATION: ASKED BUT UNKNOWN
     Route: 058
  8. OMALIZUMAB [Suspect]
     Active Substance: OMALIZUMAB
     Indication: Chronic spontaneous urticaria
     Dosage: THERAPY DURATION: ASKED BUT UNKNOWN
     Route: 058
  9. PREDNISONE [Suspect]
     Active Substance: PREDNISONE
     Indication: Product used for unknown indication
     Dosage: DOSE, FREQUENCY, THERAPY DURATION: ASKED BUT UNKNOWN
  10. CROMOLYN SODIUM [Suspect]
     Active Substance: CROMOLYN SODIUM
     Indication: Urticaria
     Dosage: THERAPY DURATION: ASKED BUT UNKNOWN
  11. CYCLOSPORINE [Suspect]
     Active Substance: CYCLOSPORINE
     Indication: Product used for unknown indication
     Dosage: DOSE, FREQUENCY, THERAPY DURATION: ASKED BUT UNKNOWN

REACTIONS (26)
  - Rotator cuff syndrome [Recovering/Resolving]
  - Inappropriate schedule of product administration [Recovering/Resolving]
  - Diarrhoea [Recovering/Resolving]
  - Viral uveitis [Recovering/Resolving]
  - Sinusitis [Recovering/Resolving]
  - Muscle spasms [Recovering/Resolving]
  - Food allergy [Recovering/Resolving]
  - Hypersensitivity [Recovering/Resolving]
  - Perfume sensitivity [Recovering/Resolving]
  - General physical health deterioration [Recovering/Resolving]
  - Drug intolerance [Recovering/Resolving]
  - Pruritus [Recovering/Resolving]
  - Pharyngeal disorder [Recovering/Resolving]
  - Goitre [Recovering/Resolving]
  - White coat hypertension [Recovering/Resolving]
  - Nonspecific reaction [Recovering/Resolving]
  - COVID-19 [Recovering/Resolving]
  - Aphonia [Recovering/Resolving]
  - Weight decreased [Recovering/Resolving]
  - Insomnia [Recovering/Resolving]
  - Memory impairment [Recovering/Resolving]
  - Therapeutic product effect decreased [Recovering/Resolving]
  - Flushing [Recovering/Resolving]
  - Urticaria [Recovering/Resolving]
  - Drug ineffective [Recovering/Resolving]
  - Sinus congestion [Recovering/Resolving]
